FAERS Safety Report 9203815 (Version 3)
Quarter: 2013Q3

REPORT INFORMATION
  Report Type: Spontaneous
  Country: US (occurrence: US)
  Receive Date: 20130402
  Receipt Date: 20130822
  Transmission Date: 20140515
  Serious: Yes (Other)
  Sender: FDA-Public Use
  Company Number: US-PFIZER INC-2013103129

PATIENT
  Age: 52 Year
  Sex: Female
  Weight: 38.1 kg

DRUGS (5)
  1. LYRICA [Suspect]
     Indication: CONVULSION
     Dosage: 200 MG, 2X/DAY
     Route: 048
     Dates: start: 20061016
  2. PHENOBARBITAL [Concomitant]
     Indication: CONVULSION
     Dosage: 3 DF, 1X/DAY (32.4 MG X 3 QHS)
     Dates: start: 2002
  3. KEPPRA [Concomitant]
     Dosage: UNK
  4. DILANTIN [Concomitant]
     Indication: CONVULSION
     Dosage: 100 MG, 2X/DAY
     Dates: start: 2001
  5. SKELAXIN [Concomitant]
     Indication: MUSCLE SPASMS
     Dosage: I Q 6-8
     Dates: start: 2010

REACTIONS (6)
  - Lung disorder [Unknown]
  - Uterine disorder [Unknown]
  - Cough [Unknown]
  - Increased bronchial secretion [Unknown]
  - Dysphagia [Unknown]
  - Vomiting [Unknown]
